FAERS Safety Report 7386976-1 (Version None)
Quarter: 2011Q1

REPORT INFORMATION
  Report Type: 
  Country: None (occurrence: None)
  Receive Date: 20110331
  Receipt Date: 20110328
  Transmission Date: 20110831
  Serious: Yes (Other)
  Sender: FDA-Public Use
  Company Number: CA-PFIZER INC-2009198391

PATIENT
  Age: 20 Year
  Sex: Female

DRUGS (1)
  1. DILANTIN [Suspect]
     Dosage: 150 MG, 2X/DAY

REACTIONS (1)
  - CONVULSION [None]
